FAERS Safety Report 21987236 (Version 1)
Quarter: 2023Q1

REPORT INFORMATION
  Report Type: Spontaneous
  Country: CA (occurrence: CA)
  Receive Date: 20230213
  Receipt Date: 20230213
  Transmission Date: 20230418
  Serious: Yes (Hospitalization)
  Sender: FDA-Public Use
  Company Number: None

PATIENT
  Age: 52 Year
  Sex: Female

DRUGS (7)
  1. DAPSONE [Suspect]
     Active Substance: DAPSONE
     Indication: Myasthenia gravis
  2. PYRIDOSTIGMINE BROMIDE [Suspect]
     Active Substance: PYRIDOSTIGMINE BROMIDE
     Indication: Myasthenia gravis
  3. MYCOPHENOLIC ACID [Concomitant]
     Active Substance: MYCOPHENOLIC ACID
     Indication: Myasthenia gravis
     Dosage: HIGH DOSE
  4. PREDNISONE [Concomitant]
     Active Substance: PREDNISONE
     Indication: Myasthenia gravis
  5. PREDNISONE [Concomitant]
     Active Substance: PREDNISONE
     Dosage: 20-60 MG/DAY
  6. HYDROXYCHLOROQUINE [Concomitant]
     Active Substance: HYDROXYCHLOROQUINE
     Indication: Myasthenia gravis
  7. NIFEDIPINE [Concomitant]
     Active Substance: NIFEDIPINE
     Indication: Myasthenia gravis

REACTIONS (1)
  - Condition aggravated [Unknown]
